FAERS Safety Report 12521853 (Version 1)
Quarter: 2016Q3

REPORT INFORMATION
  Report Type: Spontaneous
  Country: BR (occurrence: BR)
  Receive Date: 20160701
  Receipt Date: 20160701
  Transmission Date: 20161109
  Serious: Yes (Hospitalization, Other)
  Sender: FDA-Public Use
  Company Number: BR-BRISTOL-MYERS SQUIBB COMPANY-BMS-2016-052316

PATIENT
  Age: 9 Year
  Sex: Female
  Weight: 27.5 kg

DRUGS (5)
  1. DEPAKENE [Concomitant]
     Active Substance: VALPROIC ACID
     Indication: EPILEPSY
     Dosage: 10 ML, BID
     Route: 048
     Dates: start: 2012
  2. HYDREA [Suspect]
     Active Substance: HYDROXYUREA
     Indication: SICKLE CELL ANAEMIA
     Dosage: 1 DF, QD
     Route: 048
     Dates: start: 201602
  3. TOPIRAMATO [Concomitant]
     Active Substance: TOPIRAMATE
     Indication: EPILEPSY
     Dosage: 100 MG, BID
     Route: 048
     Dates: start: 2012
  4. FRISIUM [Concomitant]
     Active Substance: CLOBAZAM
     Indication: EPILEPSY
     Dosage: 10 MG, BID
     Route: 048
     Dates: start: 2012
  5. FOLIC ACID. [Concomitant]
     Active Substance: FOLIC ACID
     Indication: ANAEMIA
     Dosage: 5 MG, QD
     Route: 048
     Dates: start: 2012

REACTIONS (6)
  - Platelet count decreased [Unknown]
  - Hypersomnia [Unknown]
  - Drug administered to patient of inappropriate age [Unknown]
  - Seizure [Unknown]
  - Abdominal pain upper [Unknown]
  - Skin discolouration [Unknown]

NARRATIVE: CASE EVENT DATE: 20160423
